FAERS Safety Report 4564496-7 (Version None)
Quarter: 2005Q1

REPORT INFORMATION
  Report Type: 
  Country: None (occurrence: None)
  Receive Date: 20050128
  Receipt Date: 20050119
  Transmission Date: 20050727
  Serious: Yes (Other)
  Sender: FDA-Public Use
  Company Number: US-MERCK-0501USA03309

PATIENT
  Sex: Female

DRUGS (1)
  1. VIOXX [Suspect]
     Route: 048
     Dates: start: 20010201

REACTIONS (4)
  - ASTHENIA [None]
  - BLINDNESS [None]
  - BRAIN STEM INFARCTION [None]
  - PARAESTHESIA [None]
